FAERS Safety Report 5521457-9 (Version None)
Quarter: 2007Q4

REPORT INFORMATION
  Report Type: 
  Country: None (occurrence: None)
  Receive Date: 20071119
  Receipt Date: 20071107
  Transmission Date: 20080405
  Serious: Yes (Life-Threatening, Hospitalization, Disabling)
  Sender: FDA-Public Use
  Company Number: JP-PFIZER INC-2006155147

PATIENT
  Sex: Male

DRUGS (4)
  1. ZITHROMAX [Suspect]
     Indication: PNEUMONIA MYCOPLASMAL
     Dosage: DAILY DOSE:500MG
     Route: 048
     Dates: start: 20061214, end: 20061216
  2. MEDICON [Concomitant]
     Route: 048
     Dates: start: 20061214, end: 20061216
  3. HOKUNALIN [Concomitant]
     Route: 062
     Dates: start: 20061214, end: 20061216
  4. SHOUSAIKOTOU [Concomitant]
     Route: 048
     Dates: start: 20061214, end: 20061216

REACTIONS (2)
  - PNEUMONIA ASPIRATION [None]
  - VENTRICULAR FIBRILLATION [None]
